FAERS Safety Report 10625810 (Version 2)
Quarter: 2015Q1

REPORT INFORMATION
  Report Type: Spontaneous
  Country: CZ (occurrence: CZ)
  Receive Date: 20141204
  Receipt Date: 20150120
  Transmission Date: 20150720
  Serious: No
  Sender: FDA-Public Use
  Company Number: CZ-ASTRAZENECA-2014SE91761

PATIENT
  Age: 23950 Day
  Sex: Female
  Weight: 75 kg

DRUGS (3)
  1. FASLODEX [Suspect]
     Active Substance: FULVESTRANT
     Indication: BREAST CANCER
     Dosage: 500 MG/ 14 DAYS
     Route: 030
     Dates: start: 20140910, end: 20140924
  2. EUTHYROX [Concomitant]
     Active Substance: LEVOTHYROXINE SODIUM
     Indication: HYPOTHYROIDISM
     Route: 048
  3. VIGANTOL [Concomitant]
     Indication: OSTEOPOROSIS PROPHYLAXIS
     Dosage: 10 DROPS WEEKLY
     Route: 048
     Dates: start: 20140325

REACTIONS (6)
  - Swelling face [Unknown]
  - Nausea [Unknown]
  - Hyperhidrosis [Unknown]
  - Local swelling [Unknown]
  - Dermatitis allergic [Recovered/Resolved]
  - Malaise [Unknown]

NARRATIVE: CASE EVENT DATE: 20141003
